FAERS Safety Report 6823032-2 (Version None)
Quarter: 2010Q3

REPORT INFORMATION
  Report Type: 
  Country: None (occurrence: None)
  Receive Date: 20100708
  Receipt Date: 20100705
  Transmission Date: 20110219
  Serious: Yes (Hospitalization)
  Sender: FDA-Public Use
  Company Number: B0621872A

PATIENT
  Sex: Female
  Weight: 63.4 kg

DRUGS (13)
  1. TOPOTECAN [Suspect]
     Route: 042
     Dates: start: 20091123
  2. OXYCONTIN [Concomitant]
     Dosage: 120MG THREE TIMES PER DAY
     Route: 048
     Dates: start: 20090101, end: 20090712
  3. METHADONE [Concomitant]
     Dosage: 90MG THREE TIMES PER DAY
     Route: 048
     Dates: start: 20091031
  4. DURAGESIC-100 [Concomitant]
     Dosage: 6600UG PER DAY
     Dates: start: 20090101, end: 20090712
  5. GABAPENTIN [Concomitant]
     Route: 048
     Dates: start: 20091031
  6. SELOZOK [Concomitant]
     Indication: ATRIAL FIBRILLATION
     Dosage: 100MG TWICE PER DAY
     Route: 048
  7. NEXIUM [Concomitant]
     Dosage: 80MG TWICE PER DAY
     Route: 048
  8. ZOPICLONE [Concomitant]
     Indication: HYPNOTHERAPY
     Dosage: 7.5MG PER DAY
     Route: 048
     Dates: start: 20091201
  9. PINEX [Concomitant]
     Dosage: 1G AS REQUIRED
     Route: 048
     Dates: start: 20091201
  10. GRANON [Concomitant]
     Indication: PROPHYLAXIS
     Dosage: 200MG AS REQUIRED
     Route: 048
     Dates: start: 20090101
  11. TAVEGYL [Concomitant]
     Indication: URTICARIA
     Dosage: 1MG AS REQUIRED
     Route: 048
  12. OXYCODONE HCL [Concomitant]
     Route: 048
     Dates: start: 20090712
  13. DICILLIN [Concomitant]
     Indication: PROPHYLAXIS
     Route: 048
     Dates: start: 20091214

REACTIONS (6)
  - ANAEMIA [None]
  - ASTHENIA [None]
  - FATIGUE [None]
  - GENERAL PHYSICAL HEALTH DETERIORATION [None]
  - PLATELET COUNT DECREASED [None]
  - WHITE BLOOD CELL COUNT DECREASED [None]
